FAERS Safety Report 8875262 (Version 4)
Quarter: 2014Q3

REPORT INFORMATION
  Report Type: Spontaneous
  Country: US (occurrence: US)
  Receive Date: 20121023
  Receipt Date: 20140908
  Transmission Date: 20150326
  Serious: Yes (Death, Life-Threatening, Hospitalization)
  Sender: FDA-Public Use
  Company Number: US-BAYER-2012-108979

PATIENT
  Age: 21 Year
  Sex: Female
  Weight: 58.96 kg

DRUGS (23)
  1. YAZ [Suspect]
     Active Substance: DROSPIRENONE\ETHINYL ESTRADIOL
     Indication: ACNE
     Dosage: UNK
     Dates: start: 200601, end: 200805
  2. ZOLOFT [Concomitant]
     Active Substance: SERTRALINE HYDROCHLORIDE
  3. ACETAMINOPHEN. [Concomitant]
     Active Substance: ACETAMINOPHEN
  4. RISPERIDONE. [Concomitant]
     Active Substance: RISPERIDONE
     Indication: PSYCHOTIC DISORDER
  5. DANTROLENE [Concomitant]
     Active Substance: DANTROLENE
  6. ATIVAN [Concomitant]
     Active Substance: LORAZEPAM
     Indication: PSYCHOTIC DISORDER
  7. BROMOCRIPTINE [Concomitant]
     Active Substance: BROMOCRIPTINE
  8. MINOCYCLINE [Concomitant]
     Active Substance: MINOCYCLINE\MINOCYCLINE HYDROCHLORIDE
  9. ENEMA [PHOSPHORIC ACID SODIUM,SODIUM PHOSPHATE DIBASIC] [Concomitant]
     Indication: CONSTIPATION
  10. FLINTSTONES [Concomitant]
  11. PHENYTOIN. [Concomitant]
     Active Substance: PHENYTOIN
  12. HALDOL [Concomitant]
     Active Substance: HALOPERIDOL
     Indication: PSYCHOTIC DISORDER
  13. TYLENOL [Concomitant]
     Active Substance: ACETAMINOPHEN
     Indication: CONSTIPATION
  14. DOCUSATE [Concomitant]
     Active Substance: DOCUSATE
  15. AMBIEN [Concomitant]
     Active Substance: ZOLPIDEM TARTRATE
     Indication: DEPRESSION
  16. OCELLA [Suspect]
     Active Substance: DROSPIRENONE\ETHINYL ESTRADIOL
     Indication: ACNE
     Dosage: UNK
     Dates: start: 200807, end: 200909
  17. TETRACYCLINE [Concomitant]
     Active Substance: TETRACYCLINE
  18. YASMIN [Suspect]
     Active Substance: DROSPIRENONE\ETHINYL ESTRADIOL
     Indication: ACNE
     Dosage: UNK
     Dates: start: 200601, end: 200805
  19. AMBIEN [Concomitant]
     Active Substance: ZOLPIDEM TARTRATE
     Indication: ANXIETY
  20. DILANTIN [Concomitant]
     Active Substance: PHENYTOIN
     Indication: CONVULSION
  21. DIPHENHYDRAMINE [Concomitant]
     Active Substance: DIPHENHYDRAMINE
     Dosage: 25 MG, UNK
     Route: 030
  22. TRAZODONE [Concomitant]
     Active Substance: TRAZODONE HYDROCHLORIDE
  23. TRAZODONE [Concomitant]
     Active Substance: TRAZODONE HYDROCHLORIDE

REACTIONS (7)
  - Pelvic venous thrombosis [Fatal]
  - Pulmonary embolism [Fatal]
  - Injury [Fatal]
  - Brain injury [Fatal]
  - Cardio-respiratory arrest [Fatal]
  - Pain [Fatal]
  - Deep vein thrombosis [Fatal]

NARRATIVE: CASE EVENT DATE: 20091007
